FAERS Safety Report 9433347 (Version 2)
Quarter: 2013Q3

REPORT INFORMATION
  Report Type: Spontaneous
  Country: US (occurrence: US)
  Receive Date: 20130731
  Receipt Date: 20130816
  Transmission Date: 20140515
  Serious: Yes (Life-Threatening)
  Sender: FDA-Public Use
  Company Number: US-US-EMD SERONO, INC.-7137634

PATIENT
  Age: 25 Year
  Sex: Female
  Weight: 92 kg

DRUGS (3)
  1. REBIF [Suspect]
     Indication: MULTIPLE SCLEROSIS
     Route: 058
     Dates: start: 20110531, end: 201201
  2. REBIF [Suspect]
     Dates: start: 20130412
  3. REBIF [Suspect]
     Route: 058

REACTIONS (4)
  - Pulmonary embolism [Recovered/Resolved]
  - Migraine [Recovered/Resolved]
  - Normal newborn [Recovered/Resolved]
  - Maternal exposure timing unspecified [Recovered/Resolved]
